FAERS Safety Report 21083868 (Version 1)
Quarter: 2022Q3

REPORT INFORMATION
  Report Type: Spontaneous
  Country: US (occurrence: US)
  Receive Date: 20220714
  Receipt Date: 20220714
  Transmission Date: 20221027
  Serious: No
  Sender: FDA-Public Use
  Company Number: US-JAZZ-2022-US-014062

PATIENT
  Age: 44 Year
  Sex: Female

DRUGS (2)
  1. EPIDIOLEX [Suspect]
     Active Substance: CANNABIDIOL
     Indication: Epilepsy
     Dosage: 1.7 MILLILITER, BID, FOR 7 DAYS, THEN 3.4 ML TWICE DAILY THEREAFTER
     Route: 048
     Dates: start: 20220330
  2. EPIDIOLEX [Suspect]
     Active Substance: CANNABIDIOL
     Dosage: 6.8 MILLILITER, BID
     Route: 048
     Dates: start: 202203

REACTIONS (3)
  - Seizure [Unknown]
  - Nausea [Not Recovered/Not Resolved]
  - Malaise [Unknown]

NARRATIVE: CASE EVENT DATE: 20220417
